FAERS Safety Report 6733723-X (Version None)
Quarter: 2010Q2

REPORT INFORMATION
  Report Type: 
  Country: None (occurrence: None)
  Receive Date: 20100520
  Receipt Date: 20100507
  Transmission Date: 20101027
  Serious: Yes (Other)
  Sender: FDA-Public Use
  Company Number: PHHY2010US20461

PATIENT
  Sex: Female

DRUGS (7)
  1. EXFORGE [Suspect]
     Indication: HYPERTENSION
     Dosage: 160/5 MG
     Route: 048
     Dates: start: 20080101, end: 20100203
  2. EXFORGE [Suspect]
     Dosage: 160/10 MG
     Dates: start: 20100324, end: 20100408
  3. EXFORGE [Suspect]
     Dosage: 160/5 MG
     Route: 048
  4. SIMVASTATIN [Suspect]
  5. SYNTHROID [Concomitant]
  6. GLIPIZIDE [Concomitant]
  7. WHEAT GERM [Concomitant]

REACTIONS (5)
  - BONE SWELLING [None]
  - JOINT SWELLING [None]
  - MUSCULOSKELETAL PAIN [None]
  - MYALGIA [None]
  - OEDEMA PERIPHERAL [None]
